FAERS Safety Report 7682495-3 (Version None)
Quarter: 2011Q3

REPORT INFORMATION
  Report Type: 
  Country: None (occurrence: None)
  Receive Date: 20110815
  Receipt Date: 20110809
  Transmission Date: 20111222
  Serious: Yes (Death, Hospitalization, Other)
  Sender: FDA-Public Use
  Company Number: PHHY2010CA35379

PATIENT
  Sex: Female

DRUGS (1)
  1. SANDOSTATIN LAR [Suspect]
     Indication: CARCINOID TUMOUR
     Dosage: 30 MG, EVERY 4 WEEKS
     Route: 030
     Dates: start: 20080603

REACTIONS (16)
  - COMA [None]
  - PNEUMONIA [None]
  - FEELING COLD [None]
  - LUNG NEOPLASM MALIGNANT [None]
  - BLOOD PRESSURE SYSTOLIC INCREASED [None]
  - LOSS OF CONSCIOUSNESS [None]
  - DYSPNOEA EXERTIONAL [None]
  - GENERAL PHYSICAL CONDITION ABNORMAL [None]
  - DYSPNOEA [None]
  - NEOPLASM MALIGNANT [None]
  - PYREXIA [None]
  - MUSCULOSKELETAL CHEST PAIN [None]
  - GAIT DISTURBANCE [None]
  - LUNG DISORDER [None]
  - BACK PAIN [None]
  - DEATH [None]
